FAERS Safety Report 4668595-0 (Version None)
Quarter: 2005Q2

REPORT INFORMATION
  Report Type: 
  Country: None (occurrence: None)
  Receive Date: 20050519
  Receipt Date: 20050510
  Transmission Date: 20051028
  Serious: Yes (Life-Threatening, Hospitalization)
  Sender: FDA-Public Use
  Company Number: 2005026809

PATIENT
  Age: 21 Month
  Sex: Male
  Weight: 10 kg

DRUGS (3)
  1. VIAGRA [Suspect]
     Indication: PULMONARY HYPERTENSION
     Dosage: 30 MG (10 MG, 3 IN 1 D), ORAL
     Route: 048
     Dates: start: 20050131, end: 20050209
  2. DIGOXIN [Concomitant]
  3. OXYGEN (OXYGEN) [Concomitant]

REACTIONS (1)
  - STRIDOR [None]
